FAERS Safety Report 4994072-3 (Version None)
Quarter: 2006Q2

REPORT INFORMATION
  Report Type: 
  Country: None (occurrence: None)
  Receive Date: 20060505
  Receipt Date: 20060424
  Transmission Date: 20061013
  Serious: Yes (Other)
  Sender: FDA-Public Use
  Company Number: PHEH2006US05401

PATIENT
  Age: 50 Year
  Sex: Female

DRUGS (5)
  1. TRILEPTAL [Suspect]
     Indication: DEPRESSION
     Dosage: 450 MG, QD
     Route: 048
  2. LEXAPRO [Suspect]
     Indication: DEPRESSION
     Dosage: 20 MG, QD
     Route: 048
     Dates: start: 20040101
  3. LEXAPRO [Suspect]
     Dosage: UNK, UNK
     Route: 048
  4. FLEXERIL [Suspect]
     Indication: INJURY
     Dosage: UNK, UNK
     Dates: start: 20051201
  5. UNKNOWN MEDICATION [Suspect]
     Indication: INJURY
     Dosage: UNK, UNK
     Dates: start: 20051201

REACTIONS (12)
  - ADRENAL DISORDER [None]
  - AMNESIA [None]
  - ARTHRALGIA [None]
  - BLOOD GLUCOSE DECREASED [None]
  - CHEST PAIN [None]
  - DISTURBANCE IN ATTENTION [None]
  - DRUG INTERACTION [None]
  - FATIGUE [None]
  - FEELING COLD [None]
  - INTERVERTEBRAL DISC PROTRUSION [None]
  - LABORATORY TEST ABNORMAL [None]
  - ROAD TRAFFIC ACCIDENT [None]
